FAERS Safety Report 6082368-6 (Version None)
Quarter: 2009Q1

REPORT INFORMATION
  Report Type: 
  Country: None (occurrence: None)
  Receive Date: 20090218
  Receipt Date: 20090115
  Transmission Date: 20090719
  Serious: Yes (Hospitalization)
  Sender: FDA-Public Use
  Company Number: FR-AVENTIS-200814573FR

PATIENT
  Age: 82 Year
  Sex: Male

DRUGS (12)
  1. LASIX [Suspect]
     Route: 048
     Dates: end: 20080327
  2. TAVANIC [Suspect]
     Dates: start: 20080201, end: 20080201
  3. MONO TILDIEM [Suspect]
     Route: 048
  4. CARDENSIEL [Suspect]
     Indication: DRUG USE FOR UNKNOWN INDICATION
     Route: 048
     Dates: end: 20080327
  5. HEMIGOXINE NATIVELLE [Suspect]
     Route: 048
  6. NOVONORM [Suspect]
     Indication: TYPE 2 DIABETES MELLITUS
     Route: 048
  7. PERMIXON                           /00833501/ [Suspect]
     Indication: MICTURITION DISORDER
     Route: 048
  8. AVODART [Suspect]
     Indication: BENIGN PROSTATIC HYPERPLASIA
     Route: 048
  9. LERCAN [Suspect]
     Indication: ESSENTIAL HYPERTENSION
     Route: 048
     Dates: end: 20080327
  10. PREVISCAN                          /00789001/ [Suspect]
     Route: 048
  11. AUGMENTIN '125' [Suspect]
     Dates: start: 20080201, end: 20080201
  12. ROCEPHIN [Suspect]
     Dates: start: 20080201, end: 20080201

REACTIONS (1)
  - ECZEMA [None]
